FAERS Safety Report 5927221-0 (Version None)
Quarter: 2008Q4

REPORT INFORMATION
  Report Type: 
  Country: None (occurrence: None)
  Receive Date: 20081022
  Receipt Date: 20081010
  Transmission Date: 20090506
  Serious: Yes (Life-Threatening, Other)
  Sender: FDA-Public Use
  Company Number: FR-PFIZER INC-2008086459

PATIENT
  Sex: Male

DRUGS (7)
  1. TRIFLUCAN [Suspect]
     Indication: FUNGAL INFECTION
     Route: 048
     Dates: start: 19990101
  2. PREZISTA [Suspect]
     Indication: HIV TEST POSITIVE
     Route: 048
     Dates: start: 20080319, end: 20080616
  3. NORVIR [Suspect]
     Indication: HIV TEST POSITIVE
     Dosage: DAILY DOSE:100MG
     Route: 048
     Dates: start: 19990101
  4. TRUVADA [Suspect]
     Indication: HIV TEST POSITIVE
     Route: 048
     Dates: start: 20080301
  5. VIRAFERONPEG [Suspect]
     Indication: HEPATITIS C
     Route: 042
     Dates: start: 20080201
  6. RIBAVIRIN [Suspect]
     Dates: start: 19990101
  7. VALACYCLOVIR HCL [Suspect]
     Route: 048
     Dates: start: 19990101

REACTIONS (1)
  - ANAEMIA [None]
